FAERS Safety Report 5012236-X (Version None)
Quarter: 2006Q2

REPORT INFORMATION
  Report Type: 
  Country: None (occurrence: None)
  Receive Date: 20060525
  Receipt Date: 20060525
  Transmission Date: 20061013
  Serious: Yes (Hospitalization)
  Sender: FDA-Public Use
  Company Number: None

PATIENT
  Age: 58 Year
  Sex: Male

DRUGS (1)
  1. PREDNISOLONE TAB [Suspect]
     Dosage: 5 MG DAILY PO
     Route: 048

REACTIONS (8)
  - FAECAL INCONTINENCE [None]
  - FALL [None]
  - HYPERGLYCAEMIA [None]
  - LEUKOCYTURIA [None]
  - URINARY INCONTINENCE [None]
  - URINARY TRACT INFECTION [None]
  - URINARY TRACT INFECTION FUNGAL [None]
  - WHITE BLOOD CELLS URINE POSITIVE [None]
